FAERS Safety Report 21749993 (Version 1)
Quarter: 2022Q4

REPORT INFORMATION
  Report Type: Spontaneous
  Country: US (occurrence: US)
  Receive Date: 20221219
  Receipt Date: 20221219
  Transmission Date: 20230113
  Serious: No
  Sender: FDA-Public Use
  Company Number: US-LANTHEUS-LMI-2022-01150

PATIENT

DRUGS (2)
  1. PYLARIFY [Suspect]
     Active Substance: PIFLUFOLASTAT F-18
     Indication: Scan
     Dosage: UNK
  2. GALLIUM (68GA) GOZETOTIDE [Concomitant]
     Indication: Scan
     Dosage: UNK

REACTIONS (1)
  - Drug ineffective [Unknown]
